FAERS Safety Report 4821427-X (Version None)
Quarter: 2005Q4

REPORT INFORMATION
  Report Type: 
  Country: None (occurrence: None)
  Receive Date: 20051103
  Receipt Date: 20051013
  Transmission Date: 20060501
  Serious: Yes (Other)
  Sender: FDA-Public Use
  Company Number: 200513483GDS

PATIENT

DRUGS (7)
  1. ADALAT [Suspect]
     Indication: HYPERTENSION
     Dosage: 10 MG, TOTAL DAILY
  2. ADALAT [Suspect]
     Indication: HYPERTENSION
     Dosage: 80 MG, TOTAL DAILY, ORAL
     Route: 048
  3. RIFAMPICIN [Suspect]
     Indication: TUBERCULOUS PLEURISY
  4. AMLODIPINE [Concomitant]
  5. ATENOLOL [Concomitant]
  6. URAPIDIL [Concomitant]
  7. CANDESARTAN [Concomitant]

REACTIONS (3)
  - BLOOD PRESSURE INADEQUATELY CONTROLLED [None]
  - DIALYSIS [None]
  - RENAL FAILURE [None]
